FAERS Safety Report 13866131 (Version 1)
Quarter: 2017Q3

REPORT INFORMATION
  Report Type: Spontaneous
  Country: US (occurrence: US)
  Receive Date: 20170814
  Receipt Date: 20170814
  Transmission Date: 20171127
  Serious: No
  Sender: FDA-Public Use
  Company Number: US-ROCHE-1882219

PATIENT
  Sex: Female

DRUGS (2)
  1. TUMOR NECROSIS FACTOR-TNF (UNK INGREDIENTS) [Concomitant]
     Active Substance: UNSPECIFIED INGREDIENT
     Dosage: ONGOING;UNKNOWN
     Route: 065
  2. ACTEMRA [Suspect]
     Active Substance: TOCILIZUMAB
     Indication: RHEUMATOID ARTHRITIS
     Dosage: ONGOING;NO
     Route: 065

REACTIONS (1)
  - Hepatic enzyme increased [Unknown]
